FAERS Safety Report 7583986-6 (Version None)
Quarter: 2011Q2

REPORT INFORMATION
  Report Type: 
  Country: None (occurrence: None)
  Receive Date: 20110630
  Receipt Date: 20110623
  Transmission Date: 20111010
  Serious: Yes (Hospitalization, Other)
  Sender: FDA-Public Use
  Company Number: US-BAXTER-2011BH018415

PATIENT
  Age: 51 Year
  Sex: Male

DRUGS (1)
  1. DIANEAL [Suspect]
     Indication: PERITONEAL DIALYSIS
     Route: 033
     Dates: start: 20040101

REACTIONS (4)
  - PNEUMONIA [None]
  - INFECTION [None]
  - SEPSIS [None]
  - PERIPHERAL VASCULAR DISORDER [None]
